FAERS Safety Report 21216746 (Version 2)
Quarter: 2022Q3

REPORT INFORMATION
  Report Type: Report from Study
  Country: DE (occurrence: DE)
  Receive Date: 20220816
  Receipt Date: 20220826
  Transmission Date: 20221027
  Serious: Yes (Other)
  Sender: FDA-Public Use
  Company Number: DE-002147023-NVSC2022DE163167

PATIENT
  Sex: Female
  Weight: 45 kg

DRUGS (5)
  1. LETROZOLE [Suspect]
     Active Substance: LETROZOLE
     Indication: Hormone receptor positive HER2 negative breast cancer
     Dosage: 2.5 MG, QD
     Route: 065
     Dates: start: 20200820
  2. KISQALI [Suspect]
     Active Substance: RIBOCICLIB
     Indication: Hormone receptor positive HER2 negative breast cancer
     Dosage: 200 MG, QD REGIMEN 21 DAYS INTAKE, 7 DAYS PAUSE
     Route: 065
     Dates: start: 20210305, end: 20220203
  3. KISQALI [Suspect]
     Active Substance: RIBOCICLIB
     Dosage: 400 MG, QD REGIMEN 21 DAYS INTAKE, 7 DAYS PAUSE
     Route: 065
     Dates: start: 20200820, end: 20201109
  4. KISQALI [Suspect]
     Active Substance: RIBOCICLIB
     Dosage: 400 MG, QD REGIMEN 21 DAYS INTAKE, 7 DAYS PAUSE
     Route: 065
     Dates: start: 20201120, end: 20210218
  5. KISQALI [Suspect]
     Active Substance: RIBOCICLIB
     Dosage: 400 MG, QD REGIMEN 21 DAYS INTAKE, 7 DAYS PAUSE
     Route: 065
     Dates: start: 20220204

REACTIONS (4)
  - Atrial fibrillation [Unknown]
  - Tachycardia [Unknown]
  - Dyspnoea [Unknown]
  - Weight decreased [Unknown]

NARRATIVE: CASE EVENT DATE: 20220120
